FAERS Safety Report 20662671 (Version 1)
Quarter: 2022Q1

REPORT INFORMATION
  Report Type: Spontaneous
  Country: US (occurrence: None)
  Receive Date: 20220331
  Receipt Date: 20220331
  Transmission Date: 20220424
  Serious: Yes (Hospitalization)
  Sender: FDA-Public Use
  Company Number: None

PATIENT
  Sex: Male

DRUGS (2)
  1. COLISTIMETHATE SODIUM [Suspect]
     Active Substance: COLISTIMETHATE SODIUM
     Indication: Cystic fibrosis
     Dosage: FREQUENCY : TWICE A DAY;?OTHER ROUTE : INJECTION; AS DIRECTED FOR 28 DAYS ON AND 28 DAYS OFF?
     Route: 050
  2. COLISTIMETHATE SODIUM [Suspect]
     Active Substance: COLISTIMETHATE SODIUM
     Dosage: FREQUENCY : TWICE A DAY;?
     Route: 055

REACTIONS (1)
  - Infective pulmonary exacerbation of cystic fibrosis [None]
